FAERS Safety Report 12977869 (Version 1)
Quarter: 2016Q4

REPORT INFORMATION
  Report Type: Spontaneous
  Country: US (occurrence: US)
  Receive Date: 20161128
  Receipt Date: 20161128
  Transmission Date: 20170207
  Serious: No
  Sender: FDA-Public Use
  Company Number: None

PATIENT
  Sex: Female

DRUGS (23)
  1. KCL [Concomitant]
     Active Substance: POTASSIUM CHLORIDE
  2. ROPINIROLE. [Concomitant]
     Active Substance: ROPINIROLE
  3. DULOXETINE. [Concomitant]
     Active Substance: DULOXETINE
  4. MONTELUKAST [Concomitant]
     Active Substance: MONTELUKAST SODIUM
  5. MOVANTIK [Concomitant]
     Active Substance: NALOXEGOL OXALATE
  6. OMEPRAZOLE. [Concomitant]
     Active Substance: OMEPRAZOLE
  7. TRAZODONE [Concomitant]
     Active Substance: TRAZODONE HYDROCHLORIDE
  8. ZAFIRLUKAST. [Concomitant]
     Active Substance: ZAFIRLUKAST
  9. OPSUMIT [Concomitant]
     Active Substance: MACITENTAN
  10. ATORVASTATIN [Concomitant]
     Active Substance: ATORVASTATIN
  11. ALPRAZOLAM. [Concomitant]
     Active Substance: ALPRAZOLAM
  12. CLOPIDOGREL [Concomitant]
     Active Substance: CLOPIDOGREL BISULFATE
  13. ADCIRCA [Suspect]
     Active Substance: TADALAFIL
     Indication: PULMONARY ARTERIAL HYPERTENSION
     Route: 048
     Dates: start: 20150131
  14. ORENITRAN [Concomitant]
  15. MORPHINE [Concomitant]
     Active Substance: MORPHINE
  16. LEVOCETIRIZINE [Concomitant]
     Active Substance: LEVOCETIRIZINE
  17. FUROSEMIDE. [Concomitant]
     Active Substance: FUROSEMIDE
  18. HYDRALAZINE [Concomitant]
     Active Substance: HYDRALAZINE HYDROCHLORIDE
  19. ONDANSETRON [Concomitant]
     Active Substance: ONDANSETRON
  20. HYDROMORPHONE [Concomitant]
     Active Substance: HYDROMORPHONE
  21. SPIRIVA [Concomitant]
     Active Substance: TIOTROPIUM BROMIDE MONOHYDRATE
  22. LISINOPRIL. [Concomitant]
     Active Substance: LISINOPRIL
  23. GABAPENTIN. [Concomitant]
     Active Substance: GABAPENTIN

REACTIONS (1)
  - Anaesthetic complication [None]

NARRATIVE: CASE EVENT DATE: 2016
